FAERS Safety Report 5272332-9 (Version None)
Quarter: 2007Q1

REPORT INFORMATION
  Report Type: 
  Country: None (occurrence: None)
  Receive Date: 20070320
  Receipt Date: 20070320
  Transmission Date: 20070707
  Serious: Yes (Hospitalization)
  Sender: FDA-Public Use
  Company Number: None

PATIENT
  Age: 53 Year
  Sex: Male
  Weight: 66.0437 kg

DRUGS (3)
  1. LEXIVA [Suspect]
     Indication: HIV INFECTION
     Dosage: 1400 MG PO BID
     Route: 048
     Dates: start: 20060119
  2. RITONAVIR [Suspect]
     Indication: HIV INFECTION
     Dosage: 200 MG PO QD
     Route: 048
     Dates: start: 20060119
  3. ABC/3TC FDA ABACAVIR/LAMIVUDINE [Suspect]
     Indication: HIV INFECTION
     Dosage: 1 TAB PO QD
     Route: 048
     Dates: start: 20060119

REACTIONS (5)
  - ATRIAL FIBRILLATION [None]
  - PNEUMONIA [None]
  - POST PROCEDURAL COMPLICATION [None]
  - PULMONARY GRANULOMA [None]
  - TUBERCULOSIS [None]
